FAERS Safety Report 9959435 (Version 1)
Quarter: 2014Q1

REPORT INFORMATION
  Report Type: Spontaneous
  Country: US (occurrence: None)
  Receive Date: 20140227
  Receipt Date: 20140227
  Transmission Date: 20141002
  Serious: Yes (Hospitalization)
  Sender: FDA-Public Use
  Company Number: UTC-044846

PATIENT
  Age: 64 Year
  Sex: Female
  Weight: 85.5 kg

DRUGS (1)
  1. TYVASO (6 MICROGRAM, AEROSOL FOR INHALATION) (TREPROSTINIL SODIUM) [Suspect]
     Indication: PULMONARY ARTERIAL HYPERTENSION
     Dosage: 240 MCG (60 MCG, 4 IN 1 D), INHALATION
     Route: 055
     Dates: start: 20130802

REACTIONS (3)
  - Dyspnoea [None]
  - Ascites [None]
  - Fluid overload [None]
